FAERS Safety Report 13580751 (Version 3)
Quarter: 2017Q2

REPORT INFORMATION
  Report Type: Spontaneous
  Country: JP (occurrence: JP)
  Receive Date: 20170525
  Receipt Date: 20170616
  Transmission Date: 20170830
  Serious: Yes (Death)
  Sender: FDA-Public Use
  Company Number: JP-BRACCO-011247

PATIENT
  Age: 68 Year
  Sex: Male

DRUGS (9)
  1. XYLOCAINE [Concomitant]
     Active Substance: LIDOCAINE HYDROCHLORIDE
     Dates: start: 20170424
  2. NOREPINEPHRINE. [Concomitant]
     Active Substance: NOREPINEPHRINE
     Dates: start: 20170424
  3. URSO [Concomitant]
     Active Substance: URSODIOL
  4. SAXIZON [Concomitant]
     Active Substance: HYDROCORTISONE SODIUM SUCCINATE
     Dates: start: 20170424
  5. BARACLUDE [Concomitant]
     Active Substance: ENTECAVIR
  6. IOPAMIRON [Suspect]
     Active Substance: IOPAMIDOL
     Indication: THERAPEUTIC EMBOLISATION
     Route: 013
     Dates: start: 20170424, end: 20170424
  7. PARIET [Concomitant]
     Active Substance: RABEPRAZOLE SODIUM
  8. SPIRONOLACTONE. [Concomitant]
     Active Substance: SPIRONOLACTONE
  9. POTACOL R [Concomitant]
     Dates: start: 20170424

REACTIONS (2)
  - Renal failure [Fatal]
  - Anaphylactic reaction [Fatal]

NARRATIVE: CASE EVENT DATE: 20170424
